FAERS Safety Report 16610126 (Version 2)
Quarter: 2019Q3

REPORT INFORMATION
  Report Type: Report from Study
  Country: TR (occurrence: TR)
  Receive Date: 20190722
  Receipt Date: 20190909
  Transmission Date: 20191004
  Serious: Yes (Other)
  Sender: FDA-Public Use
  Company Number: TR-PFIZER INC-2019306408

PATIENT
  Sex: Female

DRUGS (1)
  1. INFLIXIMAB [Suspect]
     Active Substance: INFLIXIMAB
     Indication: BEHCET^S SYNDROME
     Dosage: 5 MG/KG, UNK(ADDITIONAL DOSES AT 2 AND 6 WEEKS AFTER THE FIRST DOSE AND EVERY 4 WEEKS THEREAFTER)
     Route: 042

REACTIONS (2)
  - Anogenital warts [Unknown]
  - Papilloma viral infection [Unknown]
